FAERS Safety Report 4320432-X (Version None)
Quarter: 2004Q1

REPORT INFORMATION
  Report Type: 
  Country: None (occurrence: None)
  Receive Date: 20040317
  Receipt Date: 20040303
  Transmission Date: 20041129
  Serious: Yes (Disabling, Other)
  Sender: FDA-Public Use
  Company Number: 2004014928

PATIENT
  Sex: Female

DRUGS (1)
  1. LIPITOR [Suspect]
     Indication: BLOOD CHOLESTEROL INCREASED
     Dosage: 10 MG (DAILY), ORAL
     Route: 048

REACTIONS (7)
  - DIFFICULTY IN WALKING [None]
  - FATIGUE [None]
  - MUSCLE INJURY [None]
  - MUSCULAR WEAKNESS [None]
  - MYALGIA [None]
  - SPINAL DISORDER [None]
  - SUICIDAL IDEATION [None]
